FAERS Safety Report 6979562-6 (Version None)
Quarter: 2010Q3

REPORT INFORMATION
  Report Type: 
  Country: None (occurrence: None)
  Receive Date: 20100910
  Receipt Date: 20100910
  Transmission Date: 20110219
  Serious: Yes (Hospitalization)
  Sender: FDA-Public Use
  Company Number: None

PATIENT
  Age: 83 Year
  Sex: Male
  Weight: 72 kg

DRUGS (2)
  1. ASPIRIN [Suspect]
     Indication: PROPHYLAXIS
     Dosage: 81 MG EVERY DAY PO
     Route: 048
     Dates: start: 20100717, end: 20100721
  2. NAPROXEN [Suspect]
     Indication: PAIN
     Dosage: 500 MG BID PO
     Route: 048
     Dates: start: 20100512, end: 20100721

REACTIONS (3)
  - DIVERTICULUM [None]
  - ORTHOSTATIC HYPOTENSION [None]
  - RECTAL HAEMORRHAGE [None]
